FAERS Safety Report 8599303-9 (Version None)
Quarter: 2012Q3

REPORT INFORMATION
  Report Type: 
  Country: None (occurrence: None)
  Receive Date: 20120816
  Receipt Date: 20120810
  Transmission Date: 20120928
  Serious: No
  Sender: FDA-Public Use
  Company Number: US-AMGEN-USASP2012045407

PATIENT
  Age: 36 Year
  Sex: Female

DRUGS (8)
  1. NEULASTA [Suspect]
     Indication: CHEMOTHERAPY
     Dosage: UNK UNK, AFTER CHEMO
     Dates: start: 20120713
  2. FLUOROURACIL [Concomitant]
     Indication: BREAST CANCER
     Dosage: UNK
  3. NEUPOGEN [Suspect]
     Indication: CHEMOTHERAPY
     Dosage: UNK UNK, AFTER CHEMO
     Dates: start: 20120718
  4. ZOFRAN [Concomitant]
     Dosage: UNK
  5. MULTI-VITAMINS [Concomitant]
     Indication: PREGNANCY
     Dosage: UNK
  6. BENADRYL [Concomitant]
     Dosage: UNK
  7. CYTOXAN [Concomitant]
     Indication: BREAST CANCER
     Dosage: UNK
  8. ADRIAMYCIN PFS [Concomitant]
     Indication: BREAST CANCER
     Dosage: UNK

REACTIONS (3)
  - ORAL PAIN [None]
  - MOUTH HAEMORRHAGE [None]
  - STOMATITIS [None]
